FAERS Safety Report 15933124 (Version 7)
Quarter: 2019Q2

REPORT INFORMATION
  Report Type: Spontaneous
  Country: CA (occurrence: CA)
  Receive Date: 20190207
  Receipt Date: 20190620
  Transmission Date: 20190711
  Serious: Yes (Hospitalization, Other)
  Sender: FDA-Public Use
  Company Number: CA-PFIZER INC-2019050701

PATIENT
  Age: 70 Year
  Sex: Male

DRUGS (5)
  1. TECTA [Concomitant]
     Active Substance: PANTOPRAZOLE MAGNESIUM
     Dosage: UNK
     Route: 065
  2. FOLIC ACID. [Concomitant]
     Active Substance: FOLIC ACID
     Dosage: 5 MG, CYCLIC (ONCE DAILY, 6 DAYS PER WEEK)
  3. DICLOFENAC [Concomitant]
     Active Substance: DICLOFENAC
     Dosage: 25 MG, 2X/DAY
  4. CALCIUM [Concomitant]
     Active Substance: CALCIUM
     Dosage: UNK
     Route: 065
  5. METHOTREXATE SODIUM. [Suspect]
     Active Substance: METHOTREXATE SODIUM
     Indication: RHEUMATOID ARTHRITIS
     Dosage: 15 MG, WEEKLY
     Route: 058

REACTIONS (25)
  - Tendon disorder [Unknown]
  - Spinal fracture [Unknown]
  - Upper limb fracture [Unknown]
  - Lower limb fracture [Unknown]
  - Limb injury [Unknown]
  - Skin ulcer [Unknown]
  - Impaired work ability [Unknown]
  - Somnolence [Unknown]
  - Dizziness [Recovered/Resolved]
  - Drug ineffective [Unknown]
  - Musculoskeletal stiffness [Unknown]
  - Hyperhidrosis [Recovered/Resolved]
  - Rhinorrhoea [Recovered/Resolved]
  - Joint injury [Unknown]
  - Fall [Unknown]
  - Myalgia [Unknown]
  - Insomnia [Unknown]
  - Influenza [Recovered/Resolved]
  - Nasopharyngitis [Not Recovered/Not Resolved]
  - Prostate cancer [Recovering/Resolving]
  - Muscular weakness [Unknown]
  - Productive cough [Recovered/Resolved]
  - Chills [Recovered/Resolved]
  - Sensitivity to weather change [Unknown]
  - Arthralgia [Unknown]

NARRATIVE: CASE EVENT DATE: 2017
